FAERS Safety Report 4775634-5 (Version None)
Quarter: 2005Q3

REPORT INFORMATION
  Report Type: 
  Country: None (occurrence: None)
  Receive Date: 20050920
  Receipt Date: 20050920
  Transmission Date: 20060218
  Serious: Yes (Hospitalization)
  Sender: FDA-Public Use
  Company Number: None

PATIENT
  Age: 3 Year
  Sex: Male

DRUGS (1)
  1. OMNICEF [Suspect]
     Indication: OTITIS MEDIA
     Dosage: PO SUSP.
     Route: 048

REACTIONS (5)
  - DIFFICULTY IN WALKING [None]
  - JOINT SWELLING [None]
  - PYREXIA [None]
  - RASH MACULAR [None]
  - SERUM SICKNESS [None]
